FAERS Safety Report 8125303-9 (Version None)
Quarter: 2012Q1

REPORT INFORMATION
  Report Type: 
  Country: None (occurrence: None)
  Receive Date: 20120209
  Receipt Date: 20120207
  Transmission Date: 20120608
  Serious: Yes (Hospitalization)
  Sender: FDA-Public Use
  Company Number: US-GLAXOSMITHKLINE-A0858685A

PATIENT
  Age: 57 Year
  Sex: Male
  Weight: 88.6 kg

DRUGS (8)
  1. LISINOPRIL [Concomitant]
  2. LOPRESSOR [Concomitant]
  3. AVANDIA [Suspect]
     Indication: DIABETES MELLITUS
     Dosage: 2MG TWICE PER DAY
     Route: 048
     Dates: end: 20070830
  4. AVANDAMET [Suspect]
     Indication: DIABETES MELLITUS
     Dosage: .5TAB TWICE PER DAY
     Route: 048
     Dates: start: 20040101
  5. LIPITOR [Concomitant]
  6. ZETIA [Concomitant]
  7. CLONAZEPAM [Concomitant]
  8. METFORMIN HCL [Concomitant]

REACTIONS (9)
  - MYOCARDIAL INFARCTION [None]
  - BLINDNESS [None]
  - MYOCARDIAL ISCHAEMIA [None]
  - BRADYCARDIA [None]
  - ARTERIOSCLEROSIS CORONARY ARTERY [None]
  - CARDIAC FAILURE CONGESTIVE [None]
  - NEPHROPATHY [None]
  - CORONARY ARTERY BYPASS [None]
  - CORONARY ARTERY DISEASE [None]
